FAERS Safety Report 4469808-0 (Version None)
Quarter: 2004Q4

REPORT INFORMATION
  Report Type: 
  Country: None (occurrence: None)
  Receive Date: 20041008
  Receipt Date: 19971013
  Transmission Date: 20050328
  Serious: Yes (Hospitalization)
  Sender: FDA-Public Use
  Company Number: CA-GLAXOSMITHKLINE-B0050422A

PATIENT
  Age: 47 Year
  Sex: Male
  Weight: 67 kg

DRUGS (2)
  1. LAMIVUDINE [Suspect]
     Indication: HEPATITIS B
     Dosage: 100MG PER DAY
     Route: 048
     Dates: start: 19970815, end: 19971009
  2. LAMIVUDINE [Suspect]
     Dosage: 100MG PER DAY
     Route: 048
     Dates: start: 19960423, end: 19970814

REACTIONS (13)
  - ALANINE AMINOTRANSFERASE INCREASED [None]
  - ANOREXIA [None]
  - ASPARTATE AMINOTRANSFERASE INCREASED [None]
  - DIZZINESS [None]
  - FATIGUE [None]
  - HEPATIC CIRRHOSIS [None]
  - HEPATITIS B VIRUS [None]
  - HYPERBILIRUBINAEMIA [None]
  - JAUNDICE [None]
  - MELAENA [None]
  - NAUSEA [None]
  - RECTAL HAEMORRHAGE [None]
  - THROMBOCYTOPENIA [None]
